FAERS Safety Report 5021066-4 (Version None)
Quarter: 2006Q2

REPORT INFORMATION
  Report Type: 
  Country: None (occurrence: None)
  Receive Date: 20060608
  Receipt Date: 20060510
  Transmission Date: 20061013
  Serious: Yes (Other)
  Sender: FDA-Public Use
  Company Number: 2006AP02207

PATIENT
  Age: 61 Year
  Sex: Female

DRUGS (4)
  1. NOLVADEX [Suspect]
     Indication: MALIGNANT MELANOMA
     Route: 048
     Dates: start: 20030701
  2. CISPLATIN [Suspect]
     Indication: MALIGNANT MELANOMA
     Dates: start: 20030701
  3. DACARBAZINE [Concomitant]
     Indication: MALIGNANT MELANOMA
     Dates: start: 20030701
  4. NIMUSTINE HYDROCHLORIDE [Concomitant]
     Indication: MALIGNANT MELANOMA
     Dates: start: 20030701

REACTIONS (4)
  - ACUTE MYOCARDIAL INFARCTION [None]
  - BLOOD PRESSURE SYSTOLIC DECREASED [None]
  - CORONARY ARTERY OCCLUSION [None]
  - HEART RATE DECREASED [None]
